FAERS Safety Report 9477587 (Version 3)
Quarter: 2013Q3

REPORT INFORMATION
  Report Type: Spontaneous
  Country: CA (occurrence: CA)
  Receive Date: 20130827
  Receipt Date: 20130924
  Transmission Date: 20140515
  Serious: Yes (Other)
  Sender: FDA-Public Use
  Company Number: CA-BIOGENIDEC-2013BI078056

PATIENT
  Age: 45 Year
  Sex: Female

DRUGS (1)
  1. TYSABRI [Suspect]
     Indication: MULTIPLE SCLEROSIS
     Route: 042
     Dates: start: 20120606

REACTIONS (9)
  - Pneumonia escherichia [Unknown]
  - Haemoptysis [Unknown]
  - Productive cough [Unknown]
  - Arthralgia [Unknown]
  - Pyrexia [Unknown]
  - Asthenia [Not Recovered/Not Resolved]
  - Mental impairment [Not Recovered/Not Resolved]
  - Dysphagia [Not Recovered/Not Resolved]
  - Balance disorder [Not Recovered/Not Resolved]
